FAERS Safety Report 9006098 (Version 3)
Quarter: 2013Q1

REPORT INFORMATION
  Report Type: Spontaneous
  Country: BR (occurrence: BR)
  Receive Date: 20130109
  Receipt Date: 20130205
  Transmission Date: 20140127
  Serious: Yes (Hospitalization, Other)
  Sender: FDA-Public Use
  Company Number: PHHY2013BR001688

PATIENT
  Sex: Female
  Weight: 112 kg

DRUGS (12)
  1. FORASEQ [Suspect]
     Indication: ASTHMA
     Dosage: TWICE AT MORNING AND ONCE AT NIGHT
  2. FORASEQ [Suspect]
     Dosage: 2 DF, BID (2 CAP OF EACH TREATMENT)
  3. PURAN T4 [Concomitant]
  4. PANTOPRAZOLE [Concomitant]
  5. SODIUM CHLORIDE [Concomitant]
  6. FLORINEF [Concomitant]
  7. SERTRALINE [Concomitant]
  8. ENALAPRIL MALEATE [Concomitant]
     Indication: HYPERTENSION
     Dosage: 1 DF, QD
     Route: 048
  9. CHOLECALCIFEROL [Concomitant]
  10. SIMVASTATINE [Concomitant]
  11. MAGNESIUM GLYCINATE [Concomitant]
     Dosage: 1 DF, QD
     Route: 048
  12. VITAMIN B6 [Concomitant]

REACTIONS (9)
  - Addison^s disease [Not Recovered/Not Resolved]
  - Breast cancer metastatic [Unknown]
  - Vitamin D deficiency [Unknown]
  - Diarrhoea [Not Recovered/Not Resolved]
  - Oral pain [Not Recovered/Not Resolved]
  - Pyrexia [Recovered/Resolved]
  - Vomiting [Not Recovered/Not Resolved]
  - Malaise [Not Recovered/Not Resolved]
  - Headache [Not Recovered/Not Resolved]
